FAERS Safety Report 13388006 (Version 1)
Quarter: 2017Q1

REPORT INFORMATION
  Report Type: Spontaneous
  Country: GB (occurrence: GB)
  Receive Date: 20170330
  Receipt Date: 20170330
  Transmission Date: 20170429
  Serious: Yes (Other)
  Sender: FDA-Public Use
  Company Number: GB-AUROBINDO-AUR-APL-2017-31483

PATIENT
  Age: 33 Year
  Sex: Male
  Weight: 104.54 kg

DRUGS (1)
  1. AMOXICILLIN 500MG [Suspect]
     Active Substance: AMOXICILLIN
     Indication: GINGIVITIS
     Dosage: 500 MG, 3 TIMES A DAY
     Route: 048
     Dates: start: 20170301

REACTIONS (5)
  - Nervousness [Recovered/Resolved]
  - Anxiety [Recovered/Resolved]
  - Feeling abnormal [Recovered/Resolved]
  - Dissociation [Recovered/Resolved]
  - Palpitations [Recovered/Resolved]

NARRATIVE: CASE EVENT DATE: 20170301
